FAERS Safety Report 5368367-8 (Version None)
Quarter: 2007Q2

REPORT INFORMATION
  Report Type: 
  Country: None (occurrence: None)
  Receive Date: 20070621
  Receipt Date: 20070608
  Transmission Date: 20071010
  Serious: Yes (Life-Threatening, Hospitalization, Other)
  Sender: FDA-Public Use
  Company Number: WAES 0705FRA00021

PATIENT
  Age: 66 Year
  Sex: Male

DRUGS (15)
  1. CAP VORINOSTAT 300 MG [Suspect]
     Indication: NON-SMALL CELL LUNG CANCER
     Dosage: 300 MG/DAILY/PO
     Route: 048
     Dates: start: 20070502, end: 20070508
  2. CAP VORINOSTAT 300 MG [Suspect]
     Indication: NON-SMALL CELL LUNG CANCER
     Dosage: 300 MG/DAILY/PO
     Route: 048
     Dates: start: 20070529, end: 20070604
  3. CISPLATIN [Suspect]
     Indication: NON-SMALL CELL LUNG CANCER
     Dosage: SEE IMAGE
     Route: 042
     Dates: start: 20070504, end: 20070504
  4. CISPLATIN [Suspect]
     Indication: NON-SMALL CELL LUNG CANCER
     Dosage: SEE IMAGE
     Route: 042
     Dates: start: 20070531, end: 20070531
  5. GEMCITABINE [Suspect]
     Indication: NON-SMALL CELL LUNG CANCER
     Dosage: SEE IMAGE
     Route: 042
     Dates: start: 20070504, end: 20070504
  6. GEMCITABINE [Suspect]
     Indication: NON-SMALL CELL LUNG CANCER
     Dosage: SEE IMAGE
     Route: 042
     Dates: start: 20070516, end: 20070516
  7. GEMCITABINE [Suspect]
     Indication: NON-SMALL CELL LUNG CANCER
     Dosage: SEE IMAGE
     Route: 042
     Dates: start: 20070531, end: 20070531
  8. ZETIA [Concomitant]
  9. BENFLUOREX HYDROCHLORIDE [Concomitant]
  10. CLOPIDOGREL BISULFATE [Concomitant]
  11. DILTIAZEM HYDROCHLORIDE [Concomitant]
  12. NITROGLYCERIN [Concomitant]
  13. PAROXETINE HYDROCHLORIDE [Concomitant]
  14. TRAMADOL HCL [Concomitant]
  15. ZOLPIDEM TARTRATE [Concomitant]

REACTIONS (12)
  - ANAEMIA [None]
  - ANOREXIA [None]
  - BLOOD GLUCOSE INCREASED [None]
  - BLOOD POTASSIUM DECREASED [None]
  - CARDIAC TAMPONADE [None]
  - DEHYDRATION [None]
  - PERICARDITIS [None]
  - PULMONARY EMBOLISM [None]
  - RENAL FAILURE [None]
  - RIGHT VENTRICULAR FAILURE [None]
  - THROMBOCYTOPENIA [None]
  - VENA CAVA THROMBOSIS [None]
